FAERS Safety Report 8884308 (Version 2)
Quarter: 2014Q1

REPORT INFORMATION
  Report Type: Spontaneous
  Country: US (occurrence: US)
  Receive Date: 20121102
  Receipt Date: 20140317
  Transmission Date: 20141002
  Serious: No
  Sender: FDA-Public Use
  Company Number: US-ASTRAZENECA-2012SE21036

PATIENT
  Age: 64 Year
  Sex: Female
  Weight: 93.4 kg

DRUGS (16)
  1. CRESTOR [Suspect]
     Indication: BLOOD CHOLESTEROL INCREASED
     Route: 048
     Dates: start: 2012, end: 2012
  2. CRESTOR [Suspect]
     Indication: BLOOD CHOLESTEROL INCREASED
     Route: 048
     Dates: start: 201311, end: 2013
  3. CRESTOR [Suspect]
     Indication: BLOOD CHOLESTEROL INCREASED
     Route: 048
     Dates: start: 201312
  4. CRESTOR [Suspect]
     Indication: BLOOD CHOLESTEROL INCREASED
     Route: 048
     Dates: start: 201402
  5. LISINOPRIL [Suspect]
     Route: 048
  6. BUSPAR [Concomitant]
     Indication: DEPRESSION
     Dosage: DAILY
     Dates: start: 2012
  7. BUSPAR [Concomitant]
     Indication: ANXIETY
     Dosage: DAILY
     Dates: start: 2012
  8. ZOLOFT [Concomitant]
     Indication: DEPRESSION
     Dosage: DAILY
     Dates: start: 2012
  9. METFORMIN [Concomitant]
     Dates: start: 2011
  10. BISOPROLOL HCTZ [Concomitant]
     Dosage: 2.5/6.25 DAILY
     Dates: start: 1996
  11. ASPIRIN [Concomitant]
  12. CINNAMON TEA [Concomitant]
  13. DONZEPIL [Concomitant]
  14. KLONOPIN [Concomitant]
  15. IBUPROFEN [Concomitant]
  16. VALERIAN TEA [Concomitant]

REACTIONS (10)
  - Anxiety [Unknown]
  - Dyspnoea [Unknown]
  - Stress [Unknown]
  - Cough [Unknown]
  - Palpitations [Unknown]
  - Amnesia [Unknown]
  - Depression [Unknown]
  - Abnormal dreams [Unknown]
  - Drug hypersensitivity [Unknown]
  - Intentional drug misuse [Unknown]
